FAERS Safety Report 4719164-5 (Version None)
Quarter: 2005Q3

REPORT INFORMATION
  Report Type: 
  Country: None (occurrence: None)
  Receive Date: 20050719
  Receipt Date: 20050703
  Transmission Date: 20060218
  Serious: Yes (Hospitalization)
  Sender: FDA-Public Use
  Company Number: 2005092720

PATIENT
  Age: 61 Year
  Sex: Male

DRUGS (5)
  1. VIAGRA [Suspect]
     Indication: ILL-DEFINED DISORDER
     Dosage: (100 MG, AS NECESSARY), ORAL
     Route: 048
  2. ZOCOR [Concomitant]
  3. SELO-ZOK (METOPROLOL SUCCINATE) [Concomitant]
  4. RAMIPRIL [Concomitant]
  5. IMOVANE (ZOPICLONE) [Concomitant]

REACTIONS (3)
  - ALCOHOL USE [None]
  - MITRAL VALVE INCOMPETENCE [None]
  - SYNCOPE [None]
